FAERS Safety Report 7900936-0 (Version None)
Quarter: 2011Q4

REPORT INFORMATION
  Report Type: 
  Country: None (occurrence: None)
  Receive Date: 20111108
  Receipt Date: 20111026
  Transmission Date: 20120403
  Serious: Yes (Hospitalization)
  Sender: FDA-Public Use
  Company Number: US-ELI_LILLY_AND_COMPANY-US201110007948

PATIENT
  Sex: Male
  Weight: 87 kg

DRUGS (16)
  1. MULTI-VITAMIN [Concomitant]
  2. NYSTATIN [Concomitant]
  3. CRESTOR [Concomitant]
  4. VANCOMYCIN [Concomitant]
     Route: 042
  5. FLORINEF [Concomitant]
  6. METHOTREXATE [Concomitant]
  7. POTASSIUM CHLORIDE [Concomitant]
  8. PREDNISONE [Concomitant]
  9. XANAX [Concomitant]
  10. ZOSYN [Concomitant]
     Route: 042
  11. CYMBALTA [Suspect]
     Indication: AFFECTIVE DISORDER
     Dosage: 30 MG, EACH EVENING
  12. DUONEB [Concomitant]
  13. LOVENOX [Concomitant]
  14. GUAIFENESIN [Concomitant]
  15. CELEBREX [Concomitant]
  16. REGULAR INSULIN [Concomitant]

REACTIONS (3)
  - RESPIRATORY FAILURE [None]
  - DECUBITUS ULCER [None]
  - OFF LABEL USE [None]
